FAERS Safety Report 4996195-1 (Version None)
Quarter: 2006Q2

REPORT INFORMATION
  Report Type: 
  Country: None (occurrence: None)
  Receive Date: 20060504
  Receipt Date: 20060426
  Transmission Date: 20061013
  Serious: Yes (Hospitalization)
  Sender: FDA-Public Use
  Company Number: 200610513BNE

PATIENT
  Age: 67 Year

DRUGS (14)
  1. ASPIRIN [Suspect]
     Indication: ANGINA PECTORIS
     Dosage: ORAL
     Route: 048
     Dates: start: 20040703, end: 20040714
  2. ENOXAPARIN SODIUM [Suspect]
     Indication: ANGINA PECTORIS
     Dosage: 120 MG, TOTAL DAILY
     Dates: start: 20040703
  3. PLAVIX [Suspect]
     Indication: ACUTE MYOCARDIAL INFARCTION
     Dosage: 75 MG, TOTAL DAILY, ORAL
     Route: 048
     Dates: end: 20040714
  4. FRUSEMIDE [Concomitant]
  5. RAMIPRIL [Concomitant]
  6. OMEPRAZOLE [Concomitant]
  7. DOMPERIDONE [Concomitant]
  8. GTN-S [Concomitant]
  9. METOPROLOL TARTRATE [Concomitant]
  10. RITUXIMAB [Concomitant]
  11. CYCLOPHOSPHAMIDE [Concomitant]
  12. ADRIAMYCIN PFS [Concomitant]
  13. VINCRISTINE [Concomitant]
  14. PREDNISOLONE [Concomitant]

REACTIONS (4)
  - BACK PAIN [None]
  - PAIN [None]
  - PARAPLEGIA [None]
  - SPINAL CORD HAEMORRHAGE [None]
